FAERS Safety Report 6051899-7 (Version None)
Quarter: 2009Q1

REPORT INFORMATION
  Report Type: 
  Country: None (occurrence: None)
  Receive Date: 20090122
  Receipt Date: 20090122
  Transmission Date: 20090719
  Serious: Yes (Life-Threatening, Hospitalization, Other)
  Sender: FDA-Public Use
  Company Number: None

PATIENT
  Age: 46 Year
  Sex: Female
  Weight: 83.9154 kg

DRUGS (1)
  1. AVELOX [Suspect]
     Indication: SINUSITIS
     Dosage: 1 PILL DAILY PO
     Route: 048
     Dates: start: 20080115, end: 20080115

REACTIONS (5)
  - ANAPHYLACTIC SHOCK [None]
  - PULSE ABSENT [None]
  - REACTION TO DRUG EXCIPIENTS [None]
  - RESPIRATORY ARREST [None]
  - VISION BLURRED [None]
